FAERS Safety Report 10022789 (Version 1)
Quarter: 2014Q1

REPORT INFORMATION
  Report Type: Spontaneous
  Country: NL (occurrence: NL)
  Receive Date: 20140319
  Receipt Date: 20140319
  Transmission Date: 20141002
  Serious: Yes (Death, Other)
  Sender: FDA-Public Use
  Company Number: NL-PFIZER INC-2014075747

PATIENT
  Age: 66 Year
  Sex: Female
  Weight: 65 kg

DRUGS (4)
  1. LYRICA [Suspect]
     Indication: PAIN
     Dosage: 150 MG, 2X/DAY
     Dates: start: 20051102
  2. TRYPTIZOL [Interacting]
     Indication: PAIN
     Dosage: UNK
     Dates: start: 2005
  3. DIPIDOLOR [Interacting]
     Dosage: 30 MG, UNK
     Dates: start: 2005
  4. PIROXICAM [Interacting]
     Dosage: 20 MG, UNK
     Dates: start: 2005

REACTIONS (2)
  - Myocardial infarction [Fatal]
  - Drug interaction [Unknown]
